FAERS Safety Report 6122500-9 (Version None)
Quarter: 2009Q1

REPORT INFORMATION
  Report Type: 
  Country: None (occurrence: None)
  Receive Date: 20090318
  Receipt Date: 20090113
  Transmission Date: 20090719
  Serious: No
  Sender: FDA-Public Use
  Company Number: US-ASTRAZENECA-2009UW01060

PATIENT
  Sex: Male

DRUGS (7)
  1. SYMBICORT [Suspect]
     Indication: CHRONIC OBSTRUCTIVE PULMONARY DISEASE
     Dosage: 160/4.5 UG
     Route: 055
     Dates: start: 20081208
  2. SYMBICORT [Suspect]
     Indication: ASTHMA
     Dosage: 160/4.5 UG
     Route: 055
     Dates: start: 20081208
  3. THYROID MEDICATION [Concomitant]
  4. BP MEDICATION [Concomitant]
  5. NEBULIZER MEDS [Concomitant]
  6. STEROIDS [Concomitant]
  7. PULMICORT FLEXHALER [Concomitant]

REACTIONS (1)
  - DYSPNOEA [None]
